APPROVED DRUG PRODUCT: CANDESARTAN CILEXETIL
Active Ingredient: CANDESARTAN CILEXETIL
Strength: 4MG
Dosage Form/Route: TABLET;ORAL
Application: A091390 | Product #001 | TE Code: AB
Applicant: ZYDUS LIFESCIENCES LTD
Approved: Aug 23, 2017 | RLD: No | RS: No | Type: RX